FAERS Safety Report 6801793-6 (Version None)
Quarter: 2010Q2

REPORT INFORMATION
  Report Type: 
  Country: None (occurrence: None)
  Receive Date: 20100629
  Receipt Date: 20100624
  Transmission Date: 20101027
  Serious: Yes (Death, Hospitalization)
  Sender: FDA-Public Use
  Company Number: PHHY2010MX25379

PATIENT
  Sex: Female

DRUGS (3)
  1. FEMARA [Suspect]
     Indication: NEOPLASM MALIGNANT
     Dosage: 1 TABLET OF 2.5 MG/DAY
     Dates: start: 20010301
  2. MORPHINE [Suspect]
  3. CHEMOTHERAPEUTICS NOS [Concomitant]

REACTIONS (8)
  - ANAEMIA [None]
  - DECREASED APPETITE [None]
  - DEPRESSION [None]
  - FATIGUE [None]
  - MALIGNANT NEOPLASM PROGRESSION [None]
  - MOBILITY DECREASED [None]
  - NARCOTIC INTOXICATION [None]
  - RENAL FAILURE [None]
